FAERS Safety Report 19241103 (Version 1)
Quarter: 2021Q2

REPORT INFORMATION
  Report Type: Spontaneous
  Country: US (occurrence: US)
  Receive Date: 20210511
  Receipt Date: 20210511
  Transmission Date: 20210717
  Serious: Yes (Other)
  Sender: FDA-Public Use
  Company Number: None

PATIENT
  Age: 31 Year
  Sex: Female
  Weight: 78.3 kg

DRUGS (5)
  1. WOMENS MULTIVITAMIN [Concomitant]
  2. SERTRALINE [Concomitant]
     Active Substance: SERTRALINE HYDROCHLORIDE
  3. LILETTA [Concomitant]
     Active Substance: LEVONORGESTREL
  4. CEPHALEXIN. [Suspect]
     Active Substance: CEPHALEXIN
     Indication: BACTERIAL INFECTION
     Route: 048
     Dates: start: 20210504, end: 20210509
  5. BIOTIN [Concomitant]
     Active Substance: BIOTIN

REACTIONS (5)
  - Drug hypersensitivity [None]
  - Blister [None]
  - Rash pruritic [None]
  - Rash macular [None]
  - Swelling of eyelid [None]

NARRATIVE: CASE EVENT DATE: 20210510
